FAERS Safety Report 17070491 (Version 1)
Quarter: 2019Q4

REPORT INFORMATION
  Report Type: Spontaneous
  Country: DE (occurrence: DE)
  Receive Date: 20191125
  Receipt Date: 20191125
  Transmission Date: 20200122
  Serious: Yes (Other)
  Sender: FDA-Public Use
  Company Number: DE-BAYER-2019-207000

PATIENT
  Age: 23 Year
  Sex: Female

DRUGS (1)
  1. JAYDESS [Suspect]
     Active Substance: LEVONORGESTREL
     Indication: CONTRACEPTION
     Dosage: UNK
     Dates: start: 2017, end: 2019

REACTIONS (4)
  - Pregnancy with contraceptive device [Recovered/Resolved]
  - Caesarean section [None]
  - Complication of pregnancy [None]
  - Drug ineffective [None]

NARRATIVE: CASE EVENT DATE: 2019
